APPROVED DRUG PRODUCT: SEREVENT
Active Ingredient: SALMETEROL XINAFOATE
Strength: EQ 0.021MG BASE/INH
Dosage Form/Route: AEROSOL, METERED;INHALATION
Application: N020236 | Product #001
Applicant: GLAXOSMITHKLINE
Approved: Feb 4, 1994 | RLD: No | RS: No | Type: DISCN